FAERS Safety Report 24202609 (Version 1)
Quarter: 2024Q3

REPORT INFORMATION
  Report Type: Spontaneous
  Country: IT (occurrence: IT)
  Receive Date: 20240813
  Receipt Date: 20240813
  Transmission Date: 20241016
  Serious: Yes (Hospitalization)
  Sender: ROCHE
  Company Number: None

PATIENT
  Age: 55 Year
  Sex: Male

DRUGS (1)
  1. OCREVUS [Suspect]
     Active Substance: OCRELIZUMAB
     Indication: Primary progressive multiple sclerosis
     Dosage: OGNI 6 MESI
     Route: 042
     Dates: start: 20221124

REACTIONS (1)
  - Bone giant cell tumour [Recovering/Resolving]

NARRATIVE: CASE EVENT DATE: 20230901
